FAERS Safety Report 5016034-2 (Version None)
Quarter: 2006Q2

REPORT INFORMATION
  Report Type: 
  Country: None (occurrence: None)
  Receive Date: 20060531
  Receipt Date: 20060531
  Transmission Date: 20061013
  Serious: Yes (Life-Threatening, Hospitalization, Other)
  Sender: FDA-Public Use
  Company Number: None

PATIENT
  Age: 49 Year
  Sex: Male
  Weight: 65.7716 kg

DRUGS (4)
  1. CIPRO [Suspect]
     Indication: UPPER RESPIRATORY TRACT INFECTION
     Dosage: TWICE DAILY PO
     Route: 048
  2. CIPRO XR [Suspect]
     Indication: UPPER RESPIRATORY TRACT INFECTION
     Dosage: ONCE DAY PO
     Route: 048
  3. CIPRO [Concomitant]
  4. CIPRO XR [Concomitant]

REACTIONS (29)
  - AMNESIA [None]
  - ANGIONEUROTIC OEDEMA [None]
  - ANXIETY [None]
  - ARTHRALGIA [None]
  - ATROPHY [None]
  - COGNITIVE DISORDER [None]
  - DEAFNESS [None]
  - DYSKINESIA [None]
  - ERYTHEMA MULTIFORME [None]
  - GAIT DISTURBANCE [None]
  - GASTROOESOPHAGEAL REFLUX DISEASE [None]
  - GUN SHOT WOUND [None]
  - HYPOAESTHESIA [None]
  - MIGRAINE [None]
  - MOVEMENT DISORDER [None]
  - MUSCLE RUPTURE [None]
  - MYALGIA [None]
  - NAIL DISORDER [None]
  - PAIN [None]
  - PANIC DISORDER [None]
  - PARAESTHESIA [None]
  - POST PROCEDURAL COMPLICATION [None]
  - RECTAL HAEMORRHAGE [None]
  - RESTLESS LEGS SYNDROME [None]
  - SUICIDE ATTEMPT [None]
  - TENDON RUPTURE [None]
  - TENDONITIS [None]
  - TINNITUS [None]
  - VASCULITIC RASH [None]
